FAERS Safety Report 21148279 (Version 1)
Quarter: 2022Q3

REPORT INFORMATION
  Report Type: Spontaneous
  Country: IT (occurrence: None)
  Receive Date: 20220729
  Receipt Date: 20220729
  Transmission Date: 20221027
  Serious: Yes (Hospitalization)
  Sender: FDA-Public Use
  Company Number: 2022A261184

PATIENT
  Age: 68 Year
  Sex: Female

DRUGS (10)
  1. DURVALUMAB [Suspect]
     Active Substance: DURVALUMAB
     Indication: Lung adenocarcinoma
     Dosage: 1.0DF EVERY CYCLE
     Route: 042
     Dates: start: 20211021, end: 20220517
  2. METFORMIN [Concomitant]
     Active Substance: METFORMIN HYDROCHLORIDE
  3. ASPIRIN [Concomitant]
     Active Substance: ASPIRIN
  4. HYDROXYUREA [Concomitant]
     Active Substance: HYDROXYUREA
     Dosage: ONCOCARBIDE: 500MG/DIE LUNED?, MARTED?, GIOVED? E SABATO
  5. HYDROXYUREA [Concomitant]
     Active Substance: HYDROXYUREA
     Dosage: ONCOCARBIDE: 1000 MG/DIE MERCOLED?, VENERD? E DOMENICA
  6. RAMIPRIL [Concomitant]
     Active Substance: RAMIPRIL
  7. VARCODES [Concomitant]
  8. ESOMEPRAZOLE [Concomitant]
     Active Substance: ESOMEPRAZOLE
  9. ALLOPURINOL [Concomitant]
     Active Substance: ALLOPURINOL
  10. DEURSIL [Concomitant]
     Active Substance: URSODIOL
     Dosage: 300.0MG UNKNOWN

REACTIONS (2)
  - Lung consolidation [Not Recovered/Not Resolved]
  - Respiratory failure [Not Recovered/Not Resolved]

NARRATIVE: CASE EVENT DATE: 20220627
